FAERS Safety Report 7520031-2 (Version None)
Quarter: 2011Q2

REPORT INFORMATION
  Report Type: 
  Country: None (occurrence: None)
  Receive Date: 20110602
  Receipt Date: 20110527
  Transmission Date: 20111010
  Serious: Yes (Hospitalization, Other)
  Sender: FDA-Public Use
  Company Number: FR-PFIZER INC-2011024757

PATIENT
  Age: 87 Year
  Sex: Female
  Weight: 47 kg

DRUGS (3)
  1. COZAAR [Concomitant]
     Dosage: 0.5 DF, 1X/DAY
  2. AMLODIPINE [Concomitant]
     Dosage: UNK
  3. LYRICA [Suspect]
     Indication: PAIN
     Dosage: 1 DF, 1X/DAY
     Dates: start: 20100920, end: 20110118

REACTIONS (6)
  - GENERAL PHYSICAL HEALTH DETERIORATION [None]
  - GAIT DISTURBANCE [None]
  - FALL [None]
  - AGITATION [None]
  - BACK PAIN [None]
  - MUSCULOSKELETAL PAIN [None]
